FAERS Safety Report 7921473-3 (Version None)
Quarter: 2011Q4

REPORT INFORMATION
  Report Type: 
  Country: None (occurrence: None)
  Receive Date: 20111117
  Receipt Date: 20111110
  Transmission Date: 20120403
  Serious: Yes (Hospitalization, Other)
  Sender: FDA-Public Use
  Company Number: US-AMGEN-USASP2011059015

PATIENT
  Age: 70 Year
  Sex: Female

DRUGS (3)
  1. PREDNISONE TAB [Concomitant]
     Dosage: UNK
  2. ENBREL [Suspect]
     Indication: PSORIATIC ARTHROPATHY
     Dosage: 50 MG, 2 TIMES/WK
     Dates: start: 20110701
  3. ENBREL [Suspect]
     Indication: PSORIASIS

REACTIONS (9)
  - DIABETES MELLITUS [None]
  - PSORIASIS [None]
  - LOCALISED INFECTION [None]
  - SKIN ULCER [None]
  - ALOPECIA [None]
  - ASTHMA [None]
  - INJECTION SITE PAIN [None]
  - INJURY ASSOCIATED WITH DEVICE [None]
  - PNEUMONIA [None]
